FAERS Safety Report 6122943-3 (Version None)
Quarter: 2009Q1

REPORT INFORMATION
  Report Type: 
  Country: None (occurrence: None)
  Receive Date: 20090318
  Receipt Date: 20080505
  Transmission Date: 20090719
  Serious: No
  Sender: FDA-Public Use
  Company Number: US-AMGEN-KDL277623

PATIENT
  Sex: Female

DRUGS (6)
  1. NEULASTA [Suspect]
     Indication: CHEMOTHERAPY
     Dates: start: 20080421, end: 20080502
  2. CYTOXAN [Concomitant]
  3. ADRIAMYCIN RDF [Concomitant]
  4. DECADRON [Concomitant]
  5. EMEND [Concomitant]
  6. ALOXI [Concomitant]

REACTIONS (3)
  - LIP SWELLING [None]
  - RASH [None]
  - URTICARIA [None]
